FAERS Safety Report 4980354-8 (Version None)
Quarter: 2006Q2

REPORT INFORMATION
  Report Type: 
  Country: None (occurrence: None)
  Receive Date: 20060420
  Receipt Date: 20060420
  Transmission Date: 20061013
  Serious: No
  Sender: FDA-Public Use
  Company Number: None

PATIENT
  Age: 50 Year
  Sex: Female
  Weight: 104.3273 kg

DRUGS (2)
  1. THALOMID [Suspect]
     Indication: GLIOBLASTOMA MULTIFORME
     Dosage: 200MG PO H.S.
     Route: 048
  2. PROCARBAZINE [Suspect]
     Indication: GLIOBLASTOMA MULTIFORME
     Dosage: 250 MG/M2  PO X 5 DAY D1 TO D5 Q 28 DAYS
     Route: 048

REACTIONS (5)
  - ABDOMINAL DISTENSION [None]
  - CONSTIPATION [None]
  - DEHYDRATION [None]
  - FLATULENCE [None]
  - SYNCOPE [None]
